FAERS Safety Report 7996175 (Version 2)
Quarter: 2013Q4

REPORT INFORMATION
  Report Type: Report from Study
  Country: KR (occurrence: KR)
  Receive Date: 20110617
  Receipt Date: 20131220
  Transmission Date: 20140711
  Serious: Yes (Hospitalization)
  Sender: FDA-Public Use
  Company Number: KR-PURDUE-MAG-2011-0001522

PATIENT
  Age: 69 Year
  Sex: Male

DRUGS (20)
  1. OXY CR TAB [Suspect]
     Indication: PRODUCT USED FOR UNKNOWN INDICATION
     Dosage: 20 MG, BID
     Dates: start: 20110525
  2. OXY CR TAB [Suspect]
     Dosage: 10 MG, BID
     Dates: start: 20110519, end: 20110525
  3. CHLORPHENESIN [Concomitant]
     Indication: OEDEMA PERIPHERAL
     Dosage: 2 TABLET, DAILY
     Route: 048
     Dates: start: 20110323
  4. PRONASE [Concomitant]
     Indication: OEDEMA PERIPHERAL
     Dosage: 2 TABLET, DAILY
     Dates: start: 20110523
  5. RANITIDINE                         /00550802/ [Concomitant]
     Indication: PROPHYLAXIS
     Dosage: 2 TABLET, DAILY
     Dates: start: 20110323
  6. VITIS VINIFERA LEAF [Concomitant]
     Indication: OEDEMA PERIPHERAL
     Dosage: 2 CAPSL, DAILY
     Route: 048
     Dates: start: 20110323
  7. AMLODIPINE MALEATE [Concomitant]
     Indication: HYPERTENSION
     Dosage: 1 TABLET, DAILY
     Dates: start: 20070713
  8. TAMSULOSIN [Concomitant]
     Indication: DYSURIA
     Dosage: 1 TABLET, DAILY
     Route: 048
     Dates: start: 20080120
  9. FUROSEMIDE [Concomitant]
     Indication: OEDEMA PERIPHERAL
     Dosage: 0.5 TABLET, DAILY
     Route: 048
     Dates: start: 20100226
  10. METOPROLOL [Concomitant]
     Indication: HYPERTENSION
     Dosage: 1 TABLET, UNK
     Route: 048
     Dates: start: 198905
  11. LOPERAMIDE [Concomitant]
     Dosage: UNK
     Route: 048
     Dates: start: 20080621
  12. PENTOSAN POLYSULFATE SODIUM [Concomitant]
     Dosage: 1 TABLET, PRN
     Route: 048
     Dates: start: 20111116
  13. SIMVASTATIN [Concomitant]
     Dosage: 1 TABLET, UNK
     Route: 048
     Dates: start: 20091012
  14. COLONLYTELY                        /01271501/ [Concomitant]
     Dosage: UNK
     Route: 048
     Dates: start: 20110523, end: 20110523
  15. FAMOTIDINE [Concomitant]
     Dosage: 20 MG, UNK
     Route: 042
     Dates: start: 20110531, end: 20110602
  16. DOCUSATE [Concomitant]
     Dosage: UNK
     Route: 054
     Dates: start: 20110601
  17. LABETALOL HCL [Concomitant]
     Indication: HYPERTENSION
     Dosage: UNK
     Dates: start: 20110601
  18. SODIUM CHLORIDE [Concomitant]
     Dosage: 2 AMPULE, UNK
     Route: 042
     Dates: start: 20110531, end: 20110602
  19. DEXTROSE [Concomitant]
     Dosage: 10 %, UNK
     Route: 042
     Dates: start: 20110531, end: 20110602
  20. POTASSIUM CHLORIDE [Concomitant]
     Dosage: 1 AMPULE, UNK
     Route: 042
     Dates: start: 20110531, end: 20110602

REACTIONS (1)
  - Large intestinal obstruction [Recovered/Resolved]
